FAERS Safety Report 18509130 (Version 1)
Quarter: 2020Q4

REPORT INFORMATION
  Report Type: Spontaneous
  Country: US (occurrence: US)
  Receive Date: 20201117
  Receipt Date: 20201117
  Transmission Date: 20210114
  Serious: No
  Sender: FDA-Public Use
  Company Number: US-BAUSCH-BL-2020-032461

PATIENT
  Age: 71 Year
  Sex: Female
  Weight: 63.56 kg

DRUGS (4)
  1. ELIQUIS [Concomitant]
     Active Substance: APIXABAN
     Indication: PRODUCT USED FOR UNKNOWN INDICATION
     Route: 048
  2. TIMOPTIC [Suspect]
     Active Substance: TIMOLOL MALEATE
     Indication: IRIDOCORNEAL ENDOTHELIAL SYNDROME
     Dosage: IN THE LEFT EYE
     Route: 047
     Dates: start: 2020, end: 2020
  3. TIMOPTIC [Suspect]
     Active Substance: TIMOLOL MALEATE
     Indication: GLAUCOMA
  4. PROPAFENONE. [Concomitant]
     Active Substance: PROPAFENONE
     Indication: PRODUCT USED FOR UNKNOWN INDICATION
     Route: 048

REACTIONS (5)
  - Inability to afford medication [Unknown]
  - Eye irritation [Recovered/Resolved]
  - Corneal irritation [Unknown]
  - Ocular hyperaemia [Unknown]
  - Product quality issue [Unknown]

NARRATIVE: CASE EVENT DATE: 2020
